FAERS Safety Report 14671546 (Version 1)
Quarter: 2018Q1

REPORT INFORMATION
  Report Type: Report from Study
  Country: None (occurrence: US)
  Receive Date: 20180323
  Receipt Date: 20180323
  Transmission Date: 20180509
  Serious: Yes (Hospitalization, Other)
  Sender: FDA-Public Use
  Company Number: US-ABBVIE-18K-163-2292354-00

PATIENT
  Sex: Female

DRUGS (2)
  1. ULTRAM [Concomitant]
     Active Substance: TRAMADOL HYDROCHLORIDE
     Indication: PRODUCT USED FOR UNKNOWN INDICATION
  2. HUMIRA [Suspect]
     Active Substance: ADALIMUMAB
     Indication: CROHN^S DISEASE
     Route: 058

REACTIONS (5)
  - Vaginal cyst [Recovering/Resolving]
  - Influenza [Recovering/Resolving]
  - Soft tissue injury [Recovering/Resolving]
  - Vaginal haemorrhage [Recovering/Resolving]
  - Impaired healing [Recovering/Resolving]
